FAERS Safety Report 4909958-5 (Version None)
Quarter: 2006Q1

REPORT INFORMATION
  Report Type: 
  Country: None (occurrence: None)
  Receive Date: 20060213
  Receipt Date: 20060131
  Transmission Date: 20060701
  Serious: Yes (Life-Threatening, Hospitalization)
  Sender: FDA-Public Use
  Company Number: FR-SANOFI-SYNTHELABO-F01200600259

PATIENT
  Sex: Female

DRUGS (5)
  1. OXALIPLATIN [Suspect]
     Indication: COLON CANCER
     Route: 042
     Dates: start: 20051017, end: 20051017
  2. FLUOROURACIL [Suspect]
     Indication: COLON CANCER
     Dosage: Q2W
     Route: 042
     Dates: start: 20051017, end: 20051017
  3. FLUOROURACIL [Suspect]
     Route: 042
     Dates: start: 20051017, end: 20051018
  4. LEUCOVORIN [Suspect]
     Indication: COLON CANCER
     Route: 042
     Dates: start: 20051017, end: 20051018
  5. BEVACIZUMAB [Suspect]
     Indication: COLON CANCER
     Route: 042
     Dates: start: 20051017, end: 20051017

REACTIONS (1)
  - COLITIS ULCERATIVE [None]
